FAERS Safety Report 9841682 (Version 1)
Quarter: 2013Q4

REPORT INFORMATION
  Report Type: Spontaneous
  Country: US (occurrence: None)
  Receive Date: 20131211
  Receipt Date: 20131211
  Transmission Date: 20140711
  Serious: Yes (Other)
  Sender: FDA-Public Use
  Company Number: ALL1-2012-01942

PATIENT
  Age: 10 Year
  Sex: Male
  Weight: 43.5 kg

DRUGS (1)
  1. VYVANSE (LISDEXAMFETAMINE DIMESYLATE) CAPSULE [Suspect]
     Indication: ATTENTION DEFICIT/HYPERACTIVITY DISORDER
     Dosage: 40 MG, 1X/DAY: QD, ORAL
     Route: 048
     Dates: start: 20111104

REACTIONS (3)
  - Abnormal loss of weight [None]
  - Decreased appetite [None]
  - Tremor [None]
